FAERS Safety Report 23985451 (Version 1)
Quarter: 2024Q2

REPORT INFORMATION
  Report Type: Spontaneous
  Country: NL (occurrence: NL)
  Receive Date: 20240618
  Receipt Date: 20240618
  Transmission Date: 20240716
  Serious: Yes (Life-Threatening, Hospitalization, Other)
  Sender: FDA-Public Use
  Company Number: NL-STADA-01250414

PATIENT
  Age: 15 Year
  Sex: Female
  Weight: 34.5 kg

DRUGS (14)
  1. BACLOFEN [Suspect]
     Active Substance: BACLOFEN
     Indication: Cerebral palsy
     Dosage: 507 MICROGRAM, ONCE A DAY(PUMP)
     Route: 037
  2. BACLOFEN [Suspect]
     Active Substance: BACLOFEN
     Dosage: 80 MICROGRAM, ONCE A DAY(PUMP)
     Route: 037
  3. BACLOFEN [Suspect]
     Active Substance: BACLOFEN
     Dosage: 105 MILLIGRAM, ONCE A DAY(PUMP)
     Route: 037
  4. BACLOFEN [Suspect]
     Active Substance: BACLOFEN
     Dosage: 30 MILLIGRAM, ONCE A DAY(PUMP)
     Route: 037
  5. MORPHINE [Suspect]
     Active Substance: MORPHINE
     Indication: Pain
     Dosage: 4 MILLIGRAM
     Route: 042
     Dates: start: 2022, end: 2022
  6. MORPHINE [Suspect]
     Active Substance: MORPHINE
     Dosage: UNK(5 MCG/KG/H)
     Route: 050
  7. TRAMADOL [Suspect]
     Active Substance: TRAMADOL\TRAMADOL HYDROCHLORIDE
     Indication: Pain
     Dosage: 35 MILLIGRAM, ONCE A DAY
     Route: 048
     Dates: start: 2022, end: 2022
  8. GLYCOPYRRONIUM [Concomitant]
     Active Substance: GLYCOPYRRONIUM
     Indication: Product used for unknown indication
     Dosage: 1280 MICROGRAM, ONCE A DAY
     Route: 065
  9. ACETAMINOPHEN [Concomitant]
     Active Substance: ACETAMINOPHEN
     Indication: Pain
     Dosage: UNK
     Route: 042
  10. VALPROIC ACID [Concomitant]
     Active Substance: VALPROIC ACID
     Indication: Epilepsy
     Dosage: 500 MILLIGRAM, ONCE A DAY
     Route: 065
  11. APREPITANT [Concomitant]
     Active Substance: APREPITANT
     Indication: Product used for unknown indication
     Dosage: 80 MILLIGRAM, ONCE A DAY
     Route: 065
  12. OMEPRAZOLE [Concomitant]
     Active Substance: DONEPEZIL HYDROCHLORIDE\OMEPRAZOLE\OMEPRAZOLE MAGNESIUM
     Indication: Product used for unknown indication
     Dosage: 20 MILLIGRAM, ONCE A DAY
     Route: 065
  13. PERAMPANEL [Concomitant]
     Active Substance: PERAMPANEL
     Indication: Epilepsy
     Dosage: 4 MILLIGRAM, ONCE A DAY
     Route: 065
  14. BACLOFEN [Concomitant]
     Active Substance: BACLOFEN
     Indication: Product used for unknown indication
     Dosage: 5 MILLIGRAM, AS NECESSARY
     Route: 048

REACTIONS (6)
  - Apnoea [Recovered/Resolved]
  - Drug interaction [Recovered/Resolved]
  - Hypoventilation [Recovered/Resolved]
  - Hypoxia [Recovered/Resolved]
  - Overdose [Recovered/Resolved]
  - Respiratory depression [Recovered/Resolved]

NARRATIVE: CASE EVENT DATE: 20220101
